FAERS Safety Report 4715560-0 (Version None)
Quarter: 2005Q3

REPORT INFORMATION
  Report Type: 
  Country: None (occurrence: None)
  Receive Date: 20050713
  Receipt Date: 20050701
  Transmission Date: 20060218
  Serious: Yes (Life-Threatening, Hospitalization, Disabling, Other)
  Sender: FDA-Public Use
  Company Number: 2005066834

PATIENT
  Sex: Female

DRUGS (15)
  1. BEXTRA [Suspect]
     Indication: DYSMENORRHOEA
     Dosage: 10 MG (10 MG, 1 AS NECESSARY), ORAL
     Route: 048
     Dates: start: 20020530, end: 20040519
  2. BEXTRA [Suspect]
     Indication: IUCD COMPLICATION
     Dosage: 10 MG (10 MG, 1 AS NECESSARY), ORAL
     Route: 048
     Dates: start: 20020530, end: 20040519
  3. CELEBREX [Suspect]
     Indication: DYSMENORRHOEA
     Dosage: 200 MG (200 MG, 1 AS NCESSEARY), ORAL
     Route: 048
     Dates: start: 20020501, end: 20050519
  4. CELEBREX [Suspect]
     Indication: IUCD COMPLICATION
     Dosage: 200 MG (200 MG, 1 AS NCESSEARY), ORAL
     Route: 048
     Dates: start: 20020501, end: 20050519
  5. CLARITIN-D  (LARATADINE, PSEUDOEPHEDRINE SULFATE) [Suspect]
     Indication: MULTIPLE SCLEROSIS
     Dosage: ORAL
     Route: 048
     Dates: start: 19980101, end: 20040519
  6. NASACORT AQ [Suspect]
     Dosage: NASAL
     Route: 045
     Dates: start: 19980101, end: 20040519
  7. LEVOTHYROXINE SODIUM [Suspect]
     Indication: THYROIDITIS
     Dates: end: 20040519
  8. EFFEXOR XR [Suspect]
     Indication: DEPRESSION
     Dates: end: 20040519
  9. STRATTERA [Concomitant]
  10. ADVAIR (FLUTICASONE PROPIONATE, SALMETEROL XINAFOATE) [Concomitant]
  11. TESSALON [Concomitant]
  12. DOXYCYCLIND (DOXYCYCLINE) [Concomitant]
  13. CELEXA (CITALOPRAM DOXYCYCLINE) [Concomitant]
  14. CELEXA [Concomitant]
  15. DIICLYCLOMINE (DICYCLOVERINE) [Concomitant]

REACTIONS (23)
  - ASTHMA [None]
  - ATTENTION DEFICIT/HYPERACTIVITY DISORDER [None]
  - CARDIOMEGALY [None]
  - CEREBRAL ARTERY OCCLUSION [None]
  - CEREBROVASCULAR ACCIDENT [None]
  - CONGESTIVE CARDIOMYOPATHY [None]
  - DEEP VEIN THROMBOSIS [None]
  - DEPRESSION [None]
  - FLUID RETENTION [None]
  - GASTROINTESTINAL HAEMORRHAGE [None]
  - HEPATITIS [None]
  - INTESTINAL ULCER [None]
  - MOUTH ULCERATION [None]
  - NAUSEA [None]
  - OVARIAN DISORDER [None]
  - PULMONARY OEDEMA [None]
  - RESPIRATORY DISORDER [None]
  - SLEEP APNOEA SYNDROME [None]
  - THYROIDITIS [None]
  - TONGUE ULCERATION [None]
  - VENOUS THROMBOSIS [None]
  - VOMITING [None]
  - WEIGHT INCREASED [None]
